FAERS Safety Report 24556547 (Version 1)
Quarter: 2024Q4

REPORT INFORMATION
  Report Type: Spontaneous
  Country: CN (occurrence: CN)
  Receive Date: 20241028
  Receipt Date: 20241028
  Transmission Date: 20250115
  Serious: Yes (Other)
  Sender: PAREXEL
  Company Number: CN-SHANGHAI JUNSHI BIOSCIENCES CO., LTD.-CN2024011763

PATIENT

DRUGS (8)
  1. TORIPALIMAB [Suspect]
     Active Substance: TORIPALIMAB
     Indication: Bladder cancer
     Dosage: UNK
     Route: 041
  2. TORIPALIMAB [Suspect]
     Active Substance: TORIPALIMAB
     Dosage: UNK
     Route: 041
  3. TORIPALIMAB [Suspect]
     Active Substance: TORIPALIMAB
     Dosage: UNK MG
     Route: 041
  4. TORIPALIMAB [Suspect]
     Active Substance: TORIPALIMAB
     Dosage: 240 MG
     Route: 041
     Dates: start: 20240820, end: 20240820
  5. PIRARUBICIN HYDROCHLORIDE [Suspect]
     Active Substance: PIRARUBICIN HYDROCHLORIDE
     Indication: Bladder cancer
     Dosage: UNK
  6. PIRARUBICIN HYDROCHLORIDE [Suspect]
     Active Substance: PIRARUBICIN HYDROCHLORIDE
     Dosage: UNK
  7. PIRARUBICIN HYDROCHLORIDE [Suspect]
     Active Substance: PIRARUBICIN HYDROCHLORIDE
     Dosage: UNK
  8. PIRARUBICIN HYDROCHLORIDE [Suspect]
     Active Substance: PIRARUBICIN HYDROCHLORIDE
     Dosage: 40 MG
     Dates: start: 20240906, end: 20240906

REACTIONS (4)
  - Dizziness [Recovering/Resolving]
  - Pruritus [Recovering/Resolving]
  - Rash [Recovering/Resolving]
  - Hepatic function abnormal [Recovering/Resolving]

NARRATIVE: CASE EVENT DATE: 20240910
